FAERS Safety Report 6696691-5 (Version None)
Quarter: 2010Q2

REPORT INFORMATION
  Report Type: 
  Country: None (occurrence: None)
  Receive Date: 20100421
  Receipt Date: 20091104
  Transmission Date: 20101027
  Serious: No
  Sender: FDA-Public Use
  Company Number: US-000045

PATIENT
  Sex: Female
  Weight: 81 kg

DRUGS (12)
  1. KUVAN [Suspect]
     Indication: PHENYLKETONURIA
     Dosage: 800 MG BID ORAL, 800 MG QD ORAL
     Route: 048
     Dates: start: 20091001, end: 20090101
  2. KUVAN [Suspect]
     Indication: PHENYLKETONURIA
     Dosage: 800 MG BID ORAL, 800 MG QD ORAL
     Route: 048
     Dates: start: 20090101, end: 20100102
  3. NUTRIENTS WITHOUT PHENYLALANINE [Concomitant]
  4. YAZ [Concomitant]
  5. PRILOSEC [Concomitant]
  6. ROLAIDS [Concomitant]
  7. TUMS [Concomitant]
  8. ZYRTEC [Concomitant]
  9. PHENERGAN [Concomitant]
  10. DAILY MULTIVITAMIN [Concomitant]
  11. CITRACAL [Concomitant]
  12. ADVIL LIQUI-GELS [Concomitant]

REACTIONS (7)
  - ABDOMINAL PAIN UPPER [None]
  - DIARRHOEA [None]
  - DYSPEPSIA [None]
  - GALLBLADDER DISORDER [None]
  - GASTRITIS [None]
  - HEPATOMEGALY [None]
  - NAUSEA [None]
